FAERS Safety Report 4555641-8 (Version None)
Quarter: 2005Q1

REPORT INFORMATION
  Report Type: 
  Country: None (occurrence: None)
  Receive Date: 20050119
  Receipt Date: 20050110
  Transmission Date: 20050727
  Serious: Yes (Death)
  Sender: FDA-Public Use
  Company Number: US-JNJFOC-20041100310

PATIENT
  Sex: Male
  Weight: 86.18 kg

DRUGS (18)
  1. DURAGESIC [Suspect]
     Route: 062
     Dates: start: 20041028
  2. DURAGESIC [Suspect]
     Route: 062
     Dates: start: 20041028
  3. Q-PAP [Concomitant]
     Route: 049
  4. Q-PAP [Concomitant]
     Indication: PAIN
     Dosage: 325 MG, TWO TO THREE AS NEEDED
     Route: 049
  5. ZYPREXA [Concomitant]
     Dosage: AT BEDTIME
     Route: 049
  6. LASIX [Concomitant]
  7. ATENOLOL [Concomitant]
     Dosage: 25 MG, ONE HALF TABLET DAILY IN THE MORNING.
  8. DIGOXIN [Concomitant]
     Dosage: 0.125 MG, ONE IN ONE DAY ALTERNATING WITH TWO IN ONE DAY
  9. PHENYLPROPANOLAMINE HCL W/ GUAIFENESIN [Concomitant]
     Dosage: ONE TABLET EVERY MORNING.
     Route: 049
  10. PHENYLPROPANOLAMINE HCL W/ GUAIFENESIN [Concomitant]
     Dosage: ONE TO TWO AS NEEDED
     Route: 049
  11. ACETAMINOPHEN [Concomitant]
     Route: 049
  12. MUCINEX [Concomitant]
     Dosage: AT BEDTIME
  13. ASPIRIN [Concomitant]
     Dosage: EVERY MORNING
  14. ULTRAM [Concomitant]
     Dosage: ONE TO TWO TABLETS EVERY SIX HOURS AS NEEDED
     Route: 049
  15. ACETAMINOPHEN [Concomitant]
     Indication: PAIN
     Route: 054
  16. ACETAMINOPHEN [Concomitant]
     Indication: BODY TEMPERATURE INCREASED
     Dosage: 650 MG, ONE TO TWO AS NEEDED EVERY FOUR TO SIX HOURS.
     Route: 054
  17. LORAZEPAM [Concomitant]
     Indication: ANXIETY
     Dosage: .5 MG TO 1 MG EVERY FOUR TO SIX HOURS AS NEEDED
  18. ROCEPHIN [Concomitant]
     Dosage: 1 GRAM INTRAMUSCULAR WITH XYLOCAINE, DAILY FOR THREE DAYS.
     Route: 030

REACTIONS (3)
  - DEATH [None]
  - DEPRESSED LEVEL OF CONSCIOUSNESS [None]
  - LETHARGY [None]
